FAERS Safety Report 4986196-1 (Version None)
Quarter: 2006Q2

REPORT INFORMATION
  Report Type: 
  Country: None (occurrence: None)
  Receive Date: 20060428
  Receipt Date: 20051005
  Transmission Date: 20061013
  Serious: Yes (Hospitalization)
  Sender: FDA-Public Use
  Company Number: US-MERCK-0510USA03406

PATIENT
  Age: 52 Year
  Sex: Female
  Weight: 80 kg

DRUGS (1)
  1. VIOXX [Suspect]
     Indication: ARTHRITIS
     Route: 048
     Dates: start: 20001116

REACTIONS (15)
  - ABDOMINAL PAIN [None]
  - ABSCESS INTESTINAL [None]
  - ANGINA PECTORIS [None]
  - CARDIOVASCULAR DISORDER [None]
  - CHEST PAIN [None]
  - DEPRESSION [None]
  - DIVERTICULITIS [None]
  - EMOTIONAL DISORDER [None]
  - GASTRIC DISORDER [None]
  - HAEMORRHOIDS [None]
  - HYPERTENSION [None]
  - HYPOKALAEMIA [None]
  - IRRITABLE BOWEL SYNDROME [None]
  - MENSTRUATION IRREGULAR [None]
  - URINARY TRACT INFECTION [None]
